FAERS Safety Report 23574559 (Version 1)
Quarter: 2024Q1

REPORT INFORMATION
  Report Type: Spontaneous
  Country: FR (occurrence: FR)
  Receive Date: 20240228
  Receipt Date: 20240228
  Transmission Date: 20240409
  Serious: Yes (Disabling)
  Sender: FDA-Public Use
  Company Number: None

PATIENT
  Age: 39 Year
  Sex: Female
  Weight: 62 kg

DRUGS (4)
  1. CYCLOPHOSPHAMIDE [Suspect]
     Active Substance: CYCLOPHOSPHAMIDE
     Dosage: 1000 MG (REDUCED TO 20%) (CYCLICAL)
     Route: 041
     Dates: start: 20230404, end: 20230404
  2. CYCLOPHOSPHAMIDE [Suspect]
     Active Substance: CYCLOPHOSPHAMIDE
     Indication: Invasive ductal breast carcinoma
     Dosage: 1300 MG (CYCLICAL)
     Route: 041
     Dates: start: 20230214, end: 20230314
  3. EPIRUBICIN HYDROCHLORIDE [Suspect]
     Active Substance: EPIRUBICIN HYDROCHLORIDE
     Indication: Invasive ductal breast carcinoma
     Dosage: 130 MG (CYCLICAL)
     Route: 041
     Dates: start: 20230214, end: 20230404
  4. ONDANSETRON [Suspect]
     Active Substance: ONDANSETRON
     Indication: Invasive ductal breast carcinoma
     Dosage: 1 DOSAGE FORM
     Route: 048
     Dates: start: 2023

REACTIONS (3)
  - Confusional state [Recovering/Resolving]
  - Erythema [Recovering/Resolving]
  - Headache [Recovering/Resolving]

NARRATIVE: CASE EVENT DATE: 20230314
